FAERS Safety Report 6077156-0 (Version None)
Quarter: 2009Q1

REPORT INFORMATION
  Report Type: 
  Country: None (occurrence: None)
  Receive Date: 20090211
  Receipt Date: 20090129
  Transmission Date: 20090719
  Serious: Yes (Congenital Anomaly)
  Sender: FDA-Public Use
  Company Number: 1000003842

PATIENT
  Sex: Male

DRUGS (1)
  1. LEXAPRO [Suspect]
     Dosage: 10 MG (10 MG,1 IN 1 D),TRANSPLACENTAL
     Route: 064
     Dates: start: 20080201, end: 20081024

REACTIONS (2)
  - HYPOSPADIAS [None]
  - MATERNAL DRUGS AFFECTING FOETUS [None]
